FAERS Safety Report 5945741-X (Version None)
Quarter: 2008Q4

REPORT INFORMATION
  Report Type: 
  Country: None (occurrence: None)
  Receive Date: 20081105
  Receipt Date: 20081030
  Transmission Date: 20090506
  Serious: Yes (Death, Other)
  Sender: FDA-Public Use
  Company Number: 2008JP005169

PATIENT
  Age: 69 Year
  Sex: Male

DRUGS (4)
  1. FUNGUARD(MICAFUNGIN) INJECTION [Suspect]
     Indication: FEBRILE NEUTROPENIA
     Dosage: 150 MG
  2. PREDISOLONE (PREDNISOLONE) [Concomitant]
  3. MEROPENEM (MEROPENEM) FORMULATION [Concomitant]
  4. METHYLPREDNISOLONE (METHYPREDNISOLONE) FORMUALTION [Concomitant]

REACTIONS (4)
  - CHEST PAIN [None]
  - GASTROINTESTINAL HAEMORRHAGE [None]
  - MUCORMYCOSIS [None]
  - SYSTEMIC MYCOSIS [None]
